FAERS Safety Report 4350225-9 (Version None)
Quarter: 2004Q2

REPORT INFORMATION
  Report Type: 
  Country: None (occurrence: None)
  Receive Date: 20040428
  Receipt Date: 20040409
  Transmission Date: 20050107
  Serious: Yes (Hospitalization)
  Sender: FDA-Public Use
  Company Number: 7847

PATIENT
  Age: 45 Year
  Sex: Male

DRUGS (4)
  1. LEUCOVORIN CALCIUM [Suspect]
     Indication: COLORECTAL CANCER
     Dosage: 500 MG/M2 WEEKLY IV
     Route: 042
     Dates: start: 20031114
  2. FLUOROURACIL [Suspect]
     Indication: COLORECTAL CANCER
     Dosage: 1500 MG/M2 WEEKLY IV
     Route: 042
     Dates: start: 20031114
  3. IRINOTECAN [Suspect]
     Indication: COLORECTAL CANCER
     Dosage: 80 MG/M2 WEEKLY IV
     Route: 042
     Dates: start: 20031114
  4. CETUXIMAB [Concomitant]

REACTIONS (2)
  - ASTHENIA [None]
  - WEIGHT DECREASED [None]
